FAERS Safety Report 7962097-1 (Version None)
Quarter: 2011Q4

REPORT INFORMATION
  Report Type: 
  Country: None (occurrence: None)
  Receive Date: 20111207
  Receipt Date: 20111126
  Transmission Date: 20120403
  Serious: Yes (Hospitalization, Other)
  Sender: FDA-Public Use
  Company Number: JP-BRISTOL-MYERS SQUIBB COMPANY-16143877

PATIENT
  Age: 61 Year
  Sex: Female

DRUGS (8)
  1. JANUVIA [Concomitant]
     Dosage: TABLET
     Dates: start: 20110801
  2. NITRAZEPAM [Concomitant]
     Dates: start: 20110928
  3. DEPAKENE [Concomitant]
     Dosage: DEPAKENE R TABLET
     Dates: start: 20110801
  4. FORIT [Concomitant]
     Dates: end: 20110927
  5. HALOSTEN [Concomitant]
     Dates: end: 20110927
  6. TRIHEXYPHENIDYL HCL [Concomitant]
     Dates: end: 20110927
  7. ABILIFY [Suspect]
     Indication: SCHIZOPHRENIA
     Dosage: 28SEP-02OCT:12MG (5D) 03OCT-05OCT:6MG (3D)
     Route: 048
     Dates: start: 20110928, end: 20111005
  8. PROMAZINE HYDROCHLORIDE [Concomitant]
     Dates: start: 20110801, end: 20110927

REACTIONS (1)
  - ILEUS PARALYTIC [None]
